FAERS Safety Report 8249737-7 (Version None)
Quarter: 2012Q1

REPORT INFORMATION
  Report Type: 
  Country: None (occurrence: None)
  Receive Date: 20120328
  Receipt Date: 20120313
  Transmission Date: 20120608
  Serious: Yes (Death, Hospitalization, Other)
  Sender: FDA-Public Use
  Company Number: FK201200822

PATIENT
  Age: 27 Year
  Sex: Female

DRUGS (9)
  1. LORAZEPAM [Suspect]
     Indication: AGITATION
     Dosage: 2 MG, INTRAVENOUS (NO OTHERWISE SPECIFIED), 2 MG, SINGLE DOSE, INTRAMUSCULAR; 1 MG
     Route: 042
  2. LORAZEPAM [Suspect]
     Indication: PRODUCT USED FOR UNKNOWN INDICATION
     Dosage: 2 MG, INTRAVENOUS (NO OTHERWISE SPECIFIED), 2 MG, SINGLE DOSE, INTRAMUSCULAR; 1 MG
     Route: 042
  3. LORAZEPAM [Suspect]
     Indication: CATATONIA
     Dosage: 2 MG, INTRAVENOUS (NO OTHERWISE SPECIFIED), 2 MG, SINGLE DOSE, INTRAMUSCULAR; 1 MG
     Route: 042
  4. SERTRALINE HYDROCHLORIDE [Suspect]
     Indication: DEPRESSION
     Dosage: 50 MG, A DOSE, 50 MG, DAILY, 50 MG
  5. SERTRALINE HYDROCHLORIDE [Suspect]
     Indication: HALLUCINATION, AUDITORY
     Dosage: 50 MG, A DOSE, 50 MG, DAILY, 50 MG
  6. SERTRALINE HYDROCHLORIDE [Suspect]
     Indication: PRODUCT USED FOR UNKNOWN INDICATION
     Dosage: 50 MG, A DOSE, 50 MG, DAILY, 50 MG
  7. RISPERIDONE [Suspect]
     Indication: PRODUCT USED FOR UNKNOWN INDICATION
     Dosage: 0.5 MG, BEDTIME
  8. HALOPERIDOL [Suspect]
     Indication: AGITATION
     Dosage: 5 MG, ONCE INTRAMUSULAR
     Route: 030
  9. QUETIAPINE FUMARATE [Suspect]
     Indication: PRODUCT USED FOR UNKNOWN INDICATION
     Dosage: 25 MG

REACTIONS (26)
  - PULMONARY EMBOLISM [None]
  - AGITATION [None]
  - HEART RATE INCREASED [None]
  - PARANOIA [None]
  - STUPOR [None]
  - PSYCHOMOTOR RETARDATION [None]
  - BLOOD PRESSURE DIASTOLIC INCREASED [None]
  - DEPRESSION [None]
  - CONDITION AGGRAVATED [None]
  - DECREASED APPETITE [None]
  - CARDIO-RESPIRATORY ARREST [None]
  - PROTHROMBIN TIME PROLONGED [None]
  - MUTISM [None]
  - FALL [None]
  - UNRESPONSIVE TO STIMULI [None]
  - HALLUCINATION, AUDITORY [None]
  - MENTAL STATUS CHANGES [None]
  - CATATONIA [None]
  - BLOOD FIBRINOGEN INCREASED [None]
  - EYELID DISORDER [None]
  - WHITE BLOOD CELL COUNT INCREASED [None]
  - STARING [None]
  - KETONURIA [None]
  - POOR QUALITY SLEEP [None]
  - BLOOD GLUCOSE INCREASED [None]
  - BLOOD PRESSURE DECREASED [None]
